FAERS Safety Report 10103128 (Version 2)
Quarter: 2014Q2

REPORT INFORMATION
  Report Type: Spontaneous
  Country: US (occurrence: US)
  Receive Date: 20140424
  Receipt Date: 20140424
  Transmission Date: 20141212
  Serious: No
  Sender: FDA-Public Use
  Company Number: US-BRISTOL-MYERS SQUIBB COMPANY-20107918

PATIENT
  Age: 87 Year
  Sex: Female

DRUGS (1)
  1. ELIQUIS [Suspect]
     Dosage: LAST DOSEL:27NOV14
     Route: 048
     Dates: start: 20131011, end: 20140127

REACTIONS (1)
  - Hallucination [Recovered/Resolved]
